FAERS Safety Report 25192377 (Version 2)
Quarter: 2025Q2

REPORT INFORMATION
  Report Type: Spontaneous
  Country: FR (occurrence: FR)
  Receive Date: 20250414
  Receipt Date: 20250425
  Transmission Date: 20250717
  Serious: Yes (Disabling)
  Sender: GLAXOSMITHKLINE
  Company Number: FR-GSK-FR2025041515

PATIENT

DRUGS (1)
  1. ZEJULA [Suspect]
     Active Substance: NIRAPARIB
     Indication: Ovarian cancer
     Dosage: 100 MG, QD
     Dates: start: 20230606, end: 20250401

REACTIONS (2)
  - Tendon disorder [Unknown]
  - Product use issue [Unknown]

NARRATIVE: CASE EVENT DATE: 20230606
